FAERS Safety Report 6706943-8 (Version None)
Quarter: 2010Q2

REPORT INFORMATION
  Report Type: 
  Country: None (occurrence: None)
  Receive Date: 20100430
  Receipt Date: 20100430
  Transmission Date: 20101027
  Serious: Yes (Other)
  Sender: FDA-Public Use
  Company Number: None

PATIENT

DRUGS (1)
  1. RASBURICASE 4.5 MG [Suspect]
     Indication: HYPERURICAEMIA
     Dosage: 4.5 MG DAILY - ONE DOSE- IV
     Route: 042

REACTIONS (2)
  - METHAEMOGLOBINAEMIA [None]
  - OXYGEN SATURATION DECREASED [None]
